FAERS Safety Report 21870923 (Version 1)
Quarter: 2023Q1

REPORT INFORMATION
  Report Type: Spontaneous
  Country: US (occurrence: None)
  Receive Date: 20230113
  Receipt Date: 20230113
  Transmission Date: 20230417
  Serious: Yes (Hospitalization)
  Sender: FDA-Public Use
  Company Number: None

PATIENT
  Age: 71 Year
  Sex: Female

DRUGS (1)
  1. AVONEX [Suspect]
     Active Substance: INTERFERON BETA-1A
     Indication: Multiple sclerosis
     Dosage: OTHER STRENGTH : 30MCG/0.5ML;?OTHER QUANTITY : 30MCG;?FREQUENCY : WEEKLY;?
     Route: 030
     Dates: start: 20110418

REACTIONS (3)
  - Gait disturbance [None]
  - Mental status changes [None]
  - Speech disorder [None]

NARRATIVE: CASE EVENT DATE: 20230107
